FAERS Safety Report 9127608 (Version 1)
Quarter: 2013Q1

REPORT INFORMATION
  Report Type: Spontaneous
  Country: US (occurrence: US)
  Receive Date: 20130228
  Receipt Date: 20130228
  Transmission Date: 20140127
  Serious: Yes (Hospitalization, Other)
  Sender: FDA-Public Use
  Company Number: US-SANOFI-AVENTIS-2013SA018722

PATIENT
  Age: 67 Year
  Sex: Female

DRUGS (2)
  1. LANTUS [Suspect]
     Dosage: DOSE:50 UNIT(S)
     Route: 051
  2. APIDRA [Suspect]
     Dosage: DOSE:20 UNIT(S)
     Route: 058
     Dates: start: 20130220

REACTIONS (8)
  - Skin ulcer [Unknown]
  - Pancreatic disorder [Unknown]
  - Visual acuity reduced [Unknown]
  - Aphagia [Unknown]
  - Blood glucose increased [Unknown]
  - Malaise [Unknown]
  - Asthenia [Unknown]
  - Drug ineffective [Unknown]
